FAERS Safety Report 19972437 (Version 1)
Quarter: 2021Q4

REPORT INFORMATION
  Report Type: Spontaneous
  Country: US (occurrence: US)
  Receive Date: 20211020
  Receipt Date: 20211020
  Transmission Date: 20220304
  Serious: No
  Sender: FDA-Public Use
  Company Number: US-AUROBINDO-AUR-APL-2021-034353

PATIENT
  Sex: Male
  Weight: 87.08 kg

DRUGS (2)
  1. ALFUZOSIN [Suspect]
     Active Substance: ALFUZOSIN
     Indication: Product used for unknown indication
     Dosage: UNK
     Route: 065
  2. FINASTERIDE [Suspect]
     Active Substance: FINASTERIDE
     Indication: Pollakiuria
     Dosage: 5 MILLIGRAM, DAILY
     Route: 048
     Dates: start: 202005, end: 202108

REACTIONS (1)
  - Therapeutic product effect delayed [Unknown]
